FAERS Safety Report 7826866-0 (Version None)
Quarter: 2011Q4

REPORT INFORMATION
  Report Type: 
  Country: None (occurrence: None)
  Receive Date: 20111019
  Receipt Date: 20111019
  Transmission Date: 20120403
  Serious: Yes (Other)
  Sender: FDA-Public Use
  Company Number: None

PATIENT
  Age: 76 Year
  Sex: Female
  Weight: 81.6475 kg

DRUGS (1)
  1. GLUCOPHAGE [Suspect]
     Indication: DIABETES MELLITUS
     Dosage: 500 1X A DAY PILL

REACTIONS (4)
  - HYPOTENSION [None]
  - PAIN IN EXTREMITY [None]
  - DIZZINESS [None]
  - OEDEMA PERIPHERAL [None]
